FAERS Safety Report 6384810-X (Version None)
Quarter: 2009Q4

REPORT INFORMATION
  Report Type: 
  Country: None (occurrence: None)
  Receive Date: 20091001
  Receipt Date: 20090921
  Transmission Date: 20100525
  Serious: Yes (Other)
  Sender: FDA-Public Use
  Company Number: US-ELI_LILLY_AND_COMPANY-US200909005540

PATIENT
  Sex: Male

DRUGS (8)
  1. CYMBALTA [Suspect]
     Dosage: 30 MG, UNK
     Dates: start: 20081001, end: 20081101
  2. CYMBALTA [Suspect]
     Dosage: 60 MG, UNK
     Dates: start: 20081101, end: 20090801
  3. CYMBALTA [Suspect]
     Dosage: 90 MG, UNK
     Dates: start: 20090801
  4. SIMVASTATIN [Concomitant]
     Dosage: 1 D/F, UNK
  5. COZAAR [Concomitant]
     Dosage: 1 D/F, UNK
  6. AMLODIPINE [Concomitant]
     Dosage: 1 D/F, UNK
  7. CHANTIX                            /05703001/ [Concomitant]
     Dosage: 1 D/F, UNK
  8. OMEPRAZOLE [Concomitant]
     Dosage: 1 D/F, UNK

REACTIONS (1)
  - BLOOD TRIGLYCERIDES INCREASED [None]
